FAERS Safety Report 8091039-6 (Version None)
Quarter: 2012Q1

REPORT INFORMATION
  Report Type: 
  Country: None (occurrence: None)
  Receive Date: 20120128
  Receipt Date: 20110729
  Transmission Date: 20120608
  Serious: No
  Sender: FDA-Public Use
  Company Number: US-ABBOTT-11P-163-0843054-00

PATIENT
  Age: 62 Year
  Sex: Female

DRUGS (9)
  1. EYE VITAMIN [Concomitant]
     Indication: MACULAR DEGENERATION
  2. HUMIRA [Suspect]
     Indication: ANKYLOSING SPONDYLITIS
     Dates: start: 20110301
  3. CALCIUM [Concomitant]
     Indication: PRODUCT USED FOR UNKNOWN INDICATION
  4. VITAMIN D [Concomitant]
     Indication: PRODUCT USED FOR UNKNOWN INDICATION
  5. OMEPRAZOLE [Concomitant]
     Indication: PROPHYLAXIS AGAINST GASTROINTESTINAL ULCER
  6. TRIAMCINOLONE [Concomitant]
     Indication: PSORIASIS
  7. IBUPROFEN [Concomitant]
     Indication: ANKYLOSING SPONDYLITIS
  8. CYCLOBENZAPRINE [Concomitant]
     Indication: PSORIASIS
  9. MULTI-VITAMIN [Concomitant]
     Indication: PRODUCT USED FOR UNKNOWN INDICATION

REACTIONS (3)
  - INJECTION SITE ERYTHEMA [None]
  - INJECTION SITE REACTION [None]
  - INJECTION SITE VESICLES [None]
